FAERS Safety Report 14375329 (Version 1)
Quarter: 2018Q1

REPORT INFORMATION
  Report Type: Spontaneous
  Country: US (occurrence: US)
  Receive Date: 20180111
  Receipt Date: 20180111
  Transmission Date: 20180509
  Serious: No
  Sender: FDA-Public Use
  Company Number: US-GLAXOSMITHKLINE-US2018001467

PATIENT
  Age: 77 Year
  Sex: Female

DRUGS (1)
  1. BREO ELLIPTA [Suspect]
     Active Substance: FLUTICASONE FUROATE\VILANTEROL TRIFENATATE
     Indication: HYPERSENSITIVITY
     Dosage: 1 PUFF(S), 1D
     Route: 055
     Dates: start: 201711, end: 20171230

REACTIONS (5)
  - Nasal congestion [Recovering/Resolving]
  - Intentional product misuse [Unknown]
  - Influenza like illness [Recovering/Resolving]
  - Feeling abnormal [Recovering/Resolving]
  - Product use in unapproved indication [Recovered/Resolved]

NARRATIVE: CASE EVENT DATE: 201711
